FAERS Safety Report 7711518-8 (Version None)
Quarter: 2011Q3

REPORT INFORMATION
  Report Type: 
  Country: None (occurrence: None)
  Receive Date: 20110826
  Receipt Date: 20110816
  Transmission Date: 20111222
  Serious: Yes (Hospitalization)
  Sender: FDA-Public Use
  Company Number: FR-JNJFOC-20110808281

PATIENT
  Sex: Male

DRUGS (3)
  1. ABIRATERONE ACETATE [Suspect]
     Indication: PROSTATE CANCER
     Route: 048
     Dates: start: 20110729, end: 20110811
  2. PREDNISOLONE [Suspect]
     Indication: PROSTATE CANCER
     Route: 065
  3. ABIRATERONE ACETATE [Suspect]
     Route: 048

REACTIONS (1)
  - DERMATITIS BULLOUS [None]
